FAERS Safety Report 12309883 (Version 1)
Quarter: 2016Q2

REPORT INFORMATION
  Report Type: Spontaneous
  Country: US (occurrence: US)
  Receive Date: 20160427
  Receipt Date: 20160427
  Transmission Date: 20160815
  Serious: No
  Sender: FDA-Public Use
  Company Number: US-TAKEDA-2016MPI003030

PATIENT
  Sex: Female

DRUGS (13)
  1. NINLARO [Suspect]
     Active Substance: IXAZOMIB
     Indication: PLASMA CELL MYELOMA
     Dosage: 4 MG, UNK
     Route: 048
     Dates: start: 20160314
  2. ACYCLOVIR                          /00587301/ [Concomitant]
     Active Substance: ACYCLOVIR
     Dosage: UNK
  3. BREWERS YEAST                      /00171501/ [Concomitant]
     Dosage: UNK
  4. METHYLPREDNISOLONE ACETATE. [Concomitant]
     Active Substance: METHYLPREDNISOLONE ACETATE
     Dosage: UNK
  5. MILK THISTLE PLUS                  /08512201/ [Concomitant]
     Dosage: UNK
  6. MULTI FOR HER 50+ [Concomitant]
     Dosage: UNK
  7. KYPROLIS [Concomitant]
     Active Substance: CARFILZOMIB
     Dosage: UNK
  8. DIMETHYLAMINOETHANOL TARTRATE [Concomitant]
     Dosage: UNK
  9. TURMERIC                           /01079602/ [Concomitant]
     Active Substance: TURMERIC
     Dosage: UNK
  10. COENZYME Q10 [Concomitant]
     Active Substance: UBIDECARENONE
     Dosage: UNK
  11. CALCIUM 500+D [Concomitant]
     Active Substance: CALCIUM\VITAMIN D
     Dosage: UNK
  12. NETTLE [Concomitant]
     Active Substance: URTICA DIOICA POLLEN
     Dosage: UNK
  13. VITAMIN D3 [Concomitant]
     Active Substance: CHOLECALCIFEROL
     Dosage: UNK

REACTIONS (3)
  - Vomiting [Unknown]
  - Feeling abnormal [Unknown]
  - Nausea [Unknown]
